FAERS Safety Report 7133187-0 (Version None)
Quarter: 2010Q4

REPORT INFORMATION
  Report Type: 
  Country: None (occurrence: None)
  Receive Date: 20101202
  Receipt Date: 20101122
  Transmission Date: 20110411
  Serious: Yes (Other)
  Sender: FDA-Public Use
  Company Number: US-PERRIGO-10US015046

PATIENT
  Sex: Female
  Weight: 22.676 kg

DRUGS (4)
  1. TRIAMCINOLONE ACETONIDE [Suspect]
     Indication: URTICARIA
     Dosage: A HANDFUL, THREE TIMES
     Route: 061
     Dates: start: 20101119, end: 20101119
  2. TRIAMCINOLONE ACETONIDE [Suspect]
     Indication: DRY SKIN
     Dosage: AS NEEDED
     Route: 061
     Dates: start: 20101108, end: 20101119
  3. EUCERIN [Suspect]
     Indication: URTICARIA
     Dosage: A HANDFUL, THREE TIMES
     Route: 061
     Dates: start: 20101119, end: 20101119
  4. EUCERIN [Suspect]
     Indication: DRY SKIN
     Dosage: AS NEEDED
     Route: 061
     Dates: start: 20101108, end: 20101119

REACTIONS (4)
  - ALTERED STATE OF CONSCIOUSNESS [None]
  - HALO VISION [None]
  - INAPPROPRIATE SCHEDULE OF DRUG ADMINISTRATION [None]
  - VISION BLURRED [None]
